FAERS Safety Report 7712246-5 (Version None)
Quarter: 2011Q3

REPORT INFORMATION
  Report Type: 
  Country: None (occurrence: None)
  Receive Date: 20110822
  Receipt Date: 20110808
  Transmission Date: 20111222
  Serious: Yes (Death, Hospitalization)
  Sender: FDA-Public Use
  Company Number: UTC-009323

PATIENT
  Age: 76 Year
  Sex: Female
  Weight: 42.27 kg

DRUGS (6)
  1. COUMADIN [Concomitant]
  2. SIMVASTATIN [Concomitant]
  3. REMODULIN [Suspect]
     Indication: PULMONARY ARTERIAL HYPERTENSION
     Dosage: 184.32 UG/KG (0.128 UG/KG, 1 IN 1 MIN), INTRAVENOUS
     Route: 042
     Dates: start: 20110709
  4. DIURETICS (DIURETICS) [Concomitant]
  5. LETAIRIS [Concomitant]
  6. REVATIO [Concomitant]

REACTIONS (1)
  - DEATH [None]
